FAERS Safety Report 10083734 (Version 2)
Quarter: 2014Q2

REPORT INFORMATION
  Report Type: Spontaneous
  Country: US (occurrence: US)
  Receive Date: 20140417
  Receipt Date: 20140523
  Transmission Date: 20141212
  Serious: No
  Sender: FDA-Public Use
  Company Number: US-PFIZER INC-2014102756

PATIENT
  Age: 75 Year
  Sex: Female

DRUGS (16)
  1. XANAX [Suspect]
     Dosage: UNK
  2. NORVASC [Suspect]
     Dosage: UNK
  3. DOXYCYCLINE CALCIUM [Suspect]
     Dosage: UNK
  4. NEXIUM [Suspect]
     Dosage: UNK
  5. ISOSORBIDE DINITRATE [Suspect]
     Dosage: UNK
  6. HYDRALAZINE [Suspect]
     Dosage: UNK
  7. LASIX [Suspect]
     Dosage: UNK
  8. PRO-AIR [Suspect]
     Dosage: UNK
  9. GROWTH HORMONE AB [Suspect]
     Dosage: UNK
  10. LANTUS [Suspect]
     Dosage: UNK
  11. RANEXA [Suspect]
     Dosage: UNK
  12. HUMALOG [Suspect]
     Dosage: UNK
  13. SYNTHROID [Suspect]
     Dosage: UNK
  14. SYMBICORT [Suspect]
     Dosage: UNK
  15. DUONEB [Suspect]
     Dosage: UNK
  16. TUDORZA PRESSAIR [Suspect]
     Dosage: UNK

REACTIONS (1)
  - Drug hypersensitivity [Unknown]
